FAERS Safety Report 25804724 (Version 2)
Quarter: 2025Q3

REPORT INFORMATION
  Report Type: Report from Study
  Country: GB (occurrence: GB)
  Receive Date: 20250915
  Receipt Date: 20250919
  Transmission Date: 20251020
  Serious: Yes (Hospitalization)
  Sender: ABBVIE
  Company Number: GB-ABBVIE-6458033

PATIENT
  Sex: Female

DRUGS (1)
  1. SKYRIZI [Suspect]
     Active Substance: RISANKIZUMAB-RZAA
     Indication: Crohn^s disease
     Dosage: FORM STRENGTH - 360MG/2.4ML. DOSE - 1.00 EA. FOA: SOLUTION FOR INJECTION IN CARTRIDGE.
     Route: 058
     Dates: start: 20240930

REACTIONS (1)
  - Appendix disorder [Not Recovered/Not Resolved]
